FAERS Safety Report 7809275-X (Version None)
Quarter: 2011Q4

REPORT INFORMATION
  Report Type: 
  Country: None (occurrence: None)
  Receive Date: 20111006
  Receipt Date: 20110928
  Transmission Date: 20120403
  Serious: Yes (Hospitalization)
  Sender: FDA-Public Use
  Company Number: PHHY2011NL86889

PATIENT
  Sex: Female

DRUGS (16)
  1. AMOXICILLIN [Suspect]
     Indication: SINUSITIS
     Dosage: UNK
     Route: 048
     Dates: start: 20101115, end: 20101122
  2. DENOREX [Concomitant]
     Dosage: UNK
  3. LACTULOSE ^ALIUD PHARMA^ [Concomitant]
     Dosage: UNK
  4. AMITRIPTYLINE HCL [Suspect]
     Indication: FIBROMYALGIA
     Dosage: 1 DF, QD
     Route: 048
     Dates: start: 20101015, end: 20101203
  5. DIFLUCAN [Concomitant]
     Dosage: UNK
  6. CLEMASTINE FUMARATE [Concomitant]
     Dosage: UNK
  7. CALCIUM CARBONATE [Concomitant]
     Dosage: UNK
  8. CARBAMAZEPINE [Suspect]
     Indication: HEADACHE
     Dosage: 2 DF, QD
     Route: 048
     Dates: start: 20101022, end: 20101206
  9. CLOBETASOL PROPIONATE [Concomitant]
     Dosage: UNK
  10. FLUCONAZOLE [Concomitant]
     Dosage: UNK
  11. OMEPRAZOLE [Concomitant]
     Dosage: UNK
  12. LOCOID [Concomitant]
     Dosage: UNK
  13. ORGAMETRIL [Concomitant]
     Dosage: UNK
  14. LIDOCAINE [Concomitant]
     Dosage: UNK
  15. ACETAMINOPHEN [Concomitant]
     Dosage: UNK
  16. ALENDRONIC ACID [Concomitant]
     Dosage: 70 MG, QW

REACTIONS (1)
  - DRUG RASH WITH EOSINOPHILIA AND SYSTEMIC SYMPTOMS [None]
